FAERS Safety Report 7767944-4 (Version None)
Quarter: 2011Q3

REPORT INFORMATION
  Report Type: 
  Country: None (occurrence: None)
  Receive Date: 20110922
  Receipt Date: 20110516
  Transmission Date: 20111222
  Serious: Yes (Other)
  Sender: FDA-Public Use
  Company Number: US-ASTRAZENECA-2009UW21049

PATIENT
  Age: 41 Year
  Sex: Female
  Weight: 72.6 kg

DRUGS (8)
  1. SEROQUEL [Suspect]
     Indication: SLEEP DISORDER
     Route: 048
     Dates: start: 20000101, end: 20060101
  2. THORAZINE [Concomitant]
     Dates: start: 19840101
  3. SEROQUEL [Suspect]
     Dosage: 100 TO 200 MG
     Route: 048
     Dates: start: 20001208
  4. TOPAMAX [Concomitant]
     Dates: start: 20001208
  5. SEROQUEL [Suspect]
     Route: 048
     Dates: start: 20010101, end: 20070101
  6. PRILOSEC [Concomitant]
     Dates: start: 20001208
  7. ABILIFY [Concomitant]
     Dates: start: 20080101
  8. WELLBUTRIN [Concomitant]
     Dates: start: 20001208

REACTIONS (5)
  - DIABETIC COMA [None]
  - INSOMNIA [None]
  - TYPE 2 DIABETES MELLITUS [None]
  - PANCREATITIS [None]
  - TREMOR [None]
